FAERS Safety Report 8815215 (Version 1)
Quarter: 2012Q4

REPORT INFORMATION
  Report Type: 
  Country: TW (occurrence: TW)
  Receive Date: 20120928
  Receipt Date: 20120928
  Transmission Date: 20130627
  Serious: Yes (Death, Hospitalization)
  Sender: FDA-Public Use
  Company Number: TW-BAXTER-2012BAX017841

PATIENT
  Sex: Female

DRUGS (6)
  1. DIANEAL PD-2, PERITONEAL DIALYSIS SOLUTION WITH 1.5% DEXTROSE ^BAXTER^ [Suspect]
     Indication: CAPD
     Route: 033
  2. DIANEAL PD-2, PERITONEAL DIALYSIS SOLUTION WITH 1.5% DEXTROSE ^BAXTER^ [Suspect]
     Indication: AUTOMATED PERITONEAL DIALYSIS
  3. DIANEAL PD-2, PERITONEAL DIALYSIS SOLUTION WITH 2.5% DEXTROSE ^BAXTER^ [Suspect]
     Indication: CAPD
     Route: 033
  4. DIANEAL PD-2, PERITONEAL DIALYSIS SOLUTION WITH 2.5% DEXTROSE ^BAXTER^ [Suspect]
     Indication: AUTOMATED PERITONEAL DIALYSIS
  5. DIANEAL PD-2, PERITONEAL DIALYSIS SOLUTION WITH 4.25% DEXTROSE ^BAXTER [Suspect]
     Indication: CAPD
     Route: 033
  6. DIANEAL PD-2, PERITONEAL DIALYSIS SOLUTION WITH 4.25% DEXTROSE ^BAXTER [Suspect]
     Indication: AUTOMATED PERITONEAL DIALYSIS

REACTIONS (2)
  - Respiratory failure [Fatal]
  - Rhabdomyolysis [Unknown]
